FAERS Safety Report 6450448-9 (Version None)
Quarter: 2009Q4

REPORT INFORMATION
  Report Type: 
  Country: None (occurrence: None)
  Receive Date: 20091123
  Receipt Date: 20091112
  Transmission Date: 20100525
  Serious: Yes (Other)
  Sender: FDA-Public Use
  Company Number: JP-BAYER-200914396BYL

PATIENT
  Age: 48 Year
  Sex: Male
  Weight: 56 kg

DRUGS (10)
  1. NEXAVAR [Suspect]
     Indication: HEPATIC NEOPLASM MALIGNANT
     Dosage: UNIT DOSE: 200 MG
     Route: 048
     Dates: start: 20090722, end: 20091006
  2. NEXAVAR [Suspect]
     Dosage: TOTAL DAILY DOSE: 400 MG  UNIT DOSE: 200 MG
     Route: 048
     Dates: start: 20091020
  3. LASIX [Concomitant]
     Dosage: SINCE BEFORE ADMINISTRATION
     Route: 048
  4. LIVACT [Concomitant]
     Dosage: SINCE BEFORE ADMINISTRATION
     Route: 048
  5. AMOBAN [Concomitant]
     Dosage: SINCE BEFORE ADMINISTRATION
     Route: 048
  6. CERCINE [Concomitant]
     Dosage: SINCE BEFORE ADMINISTRATION
     Route: 048
  7. TAKEPRON [Concomitant]
     Dosage: SINCE BEFORE ADMINISTRATION
     Route: 048
  8. ZYLORIC [Concomitant]
     Dosage: SINCE BEFORE ADMINISTRATION
     Route: 048
  9. DIOVAN [Concomitant]
     Dosage: SINCE BEFORE ADMINISTRATION
     Route: 048
  10. KERATINAMIN [Concomitant]
     Indication: PROPHYLAXIS
     Route: 061
     Dates: start: 20090723

REACTIONS (5)
  - ASCITES [None]
  - ERYTHEMA [None]
  - HEPATIC FUNCTION ABNORMAL [None]
  - PALMAR-PLANTAR ERYTHRODYSAESTHESIA SYNDROME [None]
  - PRURITUS [None]
